FAERS Safety Report 9352790 (Version 2)
Quarter: 2013Q4

REPORT INFORMATION
  Report Type: Spontaneous
  Country: US (occurrence: US)
  Receive Date: 20130618
  Receipt Date: 20131004
  Transmission Date: 20140711
  Serious: Yes (Other)
  Sender: FDA-Public Use
  Company Number: US-BIOGENIDEC-2013BI053159

PATIENT
  Age: 45 Year
  Sex: Female

DRUGS (9)
  1. TECFIDERA [Suspect]
     Indication: MULTIPLE SCLEROSIS
     Route: 048
     Dates: start: 201304
  2. LAMICTAL XR [Concomitant]
     Route: 048
  3. AMBIEN [Concomitant]
     Route: 048
  4. ATIVAN [Concomitant]
     Route: 048
  5. SYNTHROID [Concomitant]
     Route: 048
  6. COMBIPATCH DIS [Concomitant]
  7. AMANTADINE [Concomitant]
     Route: 048
  8. VITAMIN D3 [Concomitant]
  9. LUVOX [Concomitant]
     Indication: DEPRESSION

REACTIONS (4)
  - Convulsion [Unknown]
  - Haematemesis [Unknown]
  - Vomiting [Unknown]
  - Nausea [Unknown]
